FAERS Safety Report 5838127-X (Version None)
Quarter: 2008Q3

REPORT INFORMATION
  Report Type: 
  Country: None (occurrence: None)
  Receive Date: 20080808
  Receipt Date: 20080728
  Transmission Date: 20090109
  Serious: Yes (Other)
  Sender: FDA-Public Use
  Company Number: US-JNJFOC-20080404689

PATIENT
  Sex: Male
  Weight: 77.11 kg

DRUGS (9)
  1. TRAMADOL HCL [Suspect]
     Dosage: AS NEEDED
     Route: 048
  2. TRAMADOL HCL [Suspect]
     Indication: PAIN
     Route: 048
  3. TRAZODONE HCL [Concomitant]
     Indication: SLEEP DISORDER
     Dosage: AT BEDTIME
     Route: 048
  4. PLAVIX [Concomitant]
     Indication: THROMBOSIS
     Route: 048
  5. COUMADIN [Concomitant]
     Indication: THROMBOSIS
     Route: 048
  6. LIPITOR [Concomitant]
     Indication: BLOOD CHOLESTEROL INCREASED
     Route: 048
  7. LANTUS [Concomitant]
     Indication: DIABETES MELLITUS
     Dosage: AT BEDTIME
     Route: 058
  8. HUMULOG INSULIN [Concomitant]
     Indication: DIABETES MELLITUS
     Route: 058
  9. ASPIRIN [Concomitant]
     Indication: ISCHAEMIC HEART DISEASE PROPHYLAXIS
     Route: 048

REACTIONS (4)
  - BRONCHITIS CHRONIC [None]
  - CONSTIPATION [None]
  - HYPERTENSION [None]
  - PAIN [None]
